FAERS Safety Report 17124517 (Version 1)
Quarter: 2019Q4

REPORT INFORMATION
  Report Type: Spontaneous
  Country: US (occurrence: US)
  Receive Date: 20191206
  Receipt Date: 20191206
  Transmission Date: 20200122
  Serious: Yes (Life-Threatening, Hospitalization, Other)
  Sender: FDA-Public Use
  Company Number: US-BAUSCH-BL-2019-062945

PATIENT
  Age: 61 Year
  Sex: Female

DRUGS (9)
  1. ATIVAN [Suspect]
     Active Substance: LORAZEPAM
     Indication: ANXIETY
     Dosage: AT NIGHT
     Route: 048
     Dates: start: 20110429, end: 20180625
  2. CELEXA [Suspect]
     Active Substance: CITALOPRAM HYDROBROMIDE
     Route: 065
     Dates: start: 20180629
  3. IBUPROFEN. [Concomitant]
     Active Substance: IBUPROFEN
     Indication: MIGRAINE
  4. MELATONIN [Concomitant]
     Active Substance: MELATONIN
     Indication: INSOMNIA
     Dosage: EXTENDED RELEASE
  5. FLONASE [Concomitant]
     Active Substance: FLUTICASONE PROPIONATE
     Indication: RHINITIS ALLERGIC
  6. ATIVAN [Suspect]
     Active Substance: LORAZEPAM
     Dosage: 21 MILLIGRAM, TOTAL
     Route: 048
     Dates: start: 20180626, end: 20180626
  7. CELEXA [Suspect]
     Active Substance: CITALOPRAM HYDROBROMIDE
     Indication: DEPRESSION
     Route: 065
     Dates: end: 20180625
  8. CELEXA [Suspect]
     Active Substance: CITALOPRAM HYDROBROMIDE
     Dosage: 180 MG IN TOTAL
     Route: 065
     Dates: start: 20180626, end: 20180626
  9. ATIVAN [Suspect]
     Active Substance: LORAZEPAM
     Dosage: AT BEDTIME
     Route: 048
     Dates: start: 20180630

REACTIONS (8)
  - Overdose [Unknown]
  - Major depression [Recovered/Resolved with Sequelae]
  - Suicide attempt [Recovered/Resolved]
  - Anxiety [Unknown]
  - Somnolence [Unknown]
  - Post-traumatic stress disorder [Unknown]
  - Vertigo positional [Unknown]
  - Psychophysiologic insomnia [Recovered/Resolved]

NARRATIVE: CASE EVENT DATE: 20121125
